FAERS Safety Report 5801810-6 (Version None)
Quarter: 2008Q3

REPORT INFORMATION
  Report Type: 
  Country: None (occurrence: None)
  Receive Date: 20080707
  Receipt Date: 20080623
  Transmission Date: 20090109
  Serious: Yes (Death, Hospitalization)
  Sender: FDA-Public Use
  Company Number: NO-SANOFI-SYNTHELABO-A01200807137

PATIENT
  Sex: Male

DRUGS (8)
  1. SELO-ZOK [Concomitant]
     Indication: MYOCARDIAL INFARCTION
     Route: 048
  2. AMARYL [Concomitant]
     Indication: DIABETES INSIPIDUS
     Route: 048
  3. NOVORAPID [Concomitant]
     Indication: DIABETES INSIPIDUS
     Dosage: 4-6 IU
     Route: 058
  4. SIMVASTATIN [Concomitant]
     Indication: MYOCARDIAL INFARCTION
     Dosage: UNK
     Route: 048
     Dates: start: 20080403
  5. LEVOTHYROXINE SODIUM [Concomitant]
     Indication: HYPOTHYROIDISM
     Route: 048
  6. ALBYL-E [Concomitant]
     Indication: MYOCARDIAL INFARCTION
     Route: 048
  7. DIURAL [Suspect]
     Indication: CARDIAC FAILURE
     Route: 048
     Dates: start: 20080403, end: 20080506
  8. PLAVIX [Suspect]
     Indication: ACUTE MYOCARDIAL INFARCTION
     Route: 048
     Dates: start: 20080402, end: 20080506

REACTIONS (3)
  - AGRANULOCYTOSIS [None]
  - MYOCARDIAL INFARCTION [None]
  - SEPSIS [None]
